FAERS Safety Report 25554877 (Version 1)
Quarter: 2025Q3

REPORT INFORMATION
  Report Type: Spontaneous
  Country: US (occurrence: US)
  Receive Date: 20250715
  Receipt Date: 20250715
  Transmission Date: 20251021
  Serious: Yes (Other)
  Sender: INCYTE
  Company Number: US-INCYTE CORPORATION-2025IN007749

PATIENT

DRUGS (25)
  1. JAKAFI [Suspect]
     Active Substance: RUXOLITINIB
     Dosage: 20 MILLIGRAM, BID
  2. AIMOVIG [Concomitant]
     Active Substance: ERENUMAB-AOOE
     Indication: Product used for unknown indication
     Route: 065
  3. ALPRAZOLAM [Concomitant]
     Active Substance: ALPRAZOLAM
     Indication: Product used for unknown indication
     Route: 065
  4. ALPRAZOLAM [Concomitant]
     Active Substance: ALPRAZOLAM
     Route: 065
  5. AMLODIPINE [Concomitant]
     Active Substance: AMLODIPINE BESYLATE
     Indication: Product used for unknown indication
     Route: 065
  6. AMLODIPINE [Concomitant]
     Active Substance: AMLODIPINE BESYLATE
     Route: 065
  7. ARANESP [Concomitant]
     Active Substance: DARBEPOETIN ALFA
     Indication: Product used for unknown indication
     Route: 065
  8. ASPIRIN [Concomitant]
     Active Substance: ASPIRIN
     Indication: Product used for unknown indication
     Route: 065
  9. ATORVASTATIN [Concomitant]
     Active Substance: ATORVASTATIN
     Indication: Product used for unknown indication
     Route: 065
  10. ATOVAQUONE [Concomitant]
     Active Substance: ATOVAQUONE
     Indication: Product used for unknown indication
     Route: 065
  11. SODIUM CHLORIDE [Concomitant]
     Active Substance: SODIUM CHLORIDE
     Indication: Product used for unknown indication
     Route: 065
  12. BETAMETH DIPROPIONATE [Concomitant]
     Indication: Product used for unknown indication
     Route: 065
  13. CLOBETASOL [Concomitant]
     Active Substance: CLOBETASOL
     Indication: Product used for unknown indication
     Route: 065
  14. CLOBETASOL [Concomitant]
     Active Substance: CLOBETASOL
     Route: 065
  15. DECITABINE [Concomitant]
     Active Substance: DECITABINE
     Indication: Product used for unknown indication
     Route: 065
  16. DEXAMETHASONE [Concomitant]
     Active Substance: DEXAMETHASONE
     Indication: Product used for unknown indication
     Route: 065
  17. DEXAMETHASONE [Concomitant]
     Active Substance: DEXAMETHASONE
     Route: 065
  18. DEXAMETHASONE [Concomitant]
     Active Substance: DEXAMETHASONE
     Route: 065
  19. DEXAMETHASONE [Concomitant]
     Active Substance: DEXAMETHASONE
     Route: 065
  20. DILTIAZEM [Concomitant]
     Active Substance: DILTIAZEM
     Indication: Product used for unknown indication
     Route: 065
  21. ELIQUIS [Concomitant]
     Active Substance: APIXABAN
     Indication: Product used for unknown indication
     Route: 065
  22. ELIQUIS [Concomitant]
     Active Substance: APIXABAN
     Route: 065
  23. FLUTICASONE [Concomitant]
     Active Substance: FLUTICASONE
     Indication: Product used for unknown indication
     Route: 065
  24. FUROSEMIDE [Concomitant]
     Active Substance: FUROSEMIDE
     Indication: Product used for unknown indication
     Route: 065
  25. FUROSEMIDE [Concomitant]
     Active Substance: FUROSEMIDE
     Route: 065

REACTIONS (3)
  - Pyoderma gangrenosum [Unknown]
  - Platelet count decreased [Unknown]
  - Haematoma [Unknown]
